FAERS Safety Report 16940636 (Version 1)
Quarter: 2019Q4

REPORT INFORMATION
  Report Type: Spontaneous
  Country: BG (occurrence: BG)
  Receive Date: 20191021
  Receipt Date: 20191021
  Transmission Date: 20200122
  Serious: Yes (Life-Threatening, Other)
  Sender: FDA-Public Use
  Company Number: NVSC2019BG010182

PATIENT
  Age: 71 Year
  Sex: Female

DRUGS (1)
  1. ALLOPURINOL. [Suspect]
     Active Substance: ALLOPURINOL
     Indication: GOUT
     Dosage: UNK
     Route: 065

REACTIONS (9)
  - Dermatitis exfoliative [Unknown]
  - Asthenia [Unknown]
  - Rash maculo-papular [Recovering/Resolving]
  - Pruritus [Unknown]
  - Eyelid oedema [Recovering/Resolving]
  - Acute kidney injury [Unknown]
  - Tubulointerstitial nephritis [Unknown]
  - Drug reaction with eosinophilia and systemic symptoms [Recovering/Resolving]
  - Lip oedema [Recovering/Resolving]
